FAERS Safety Report 4821531-6 (Version None)
Quarter: 2005Q4

REPORT INFORMATION
  Report Type: 
  Country: None (occurrence: None)
  Receive Date: 20051103
  Receipt Date: 20051017
  Transmission Date: 20060501
  Serious: No
  Sender: FDA-Public Use
  Company Number: USA0506101385

PATIENT
  Age: 58 Year
  Sex: Female

DRUGS (4)
  1. FORTEO [Suspect]
     Indication: OSTEOPENIA
     Dates: start: 20050501
  2. METOPROLOL SUCCINATE [Concomitant]
  3. ZOCOR [Concomitant]
  4. PROTONIX [Concomitant]

REACTIONS (5)
  - ARTHRALGIA [None]
  - FALL [None]
  - FOOT FRACTURE [None]
  - LIMB INJURY [None]
  - PHARMACEUTICAL PRODUCT COMPLAINT [None]
